FAERS Safety Report 9262356 (Version 1)
Quarter: 2013Q2

REPORT INFORMATION
  Report Type: Spontaneous
  Country: US (occurrence: None)
  Receive Date: 20130425
  Receipt Date: 20130425
  Transmission Date: 20140414
  Serious: Yes (Other)
  Sender: FDA-Public Use
  Company Number: None

PATIENT
  Age: 38 Year
  Sex: Male
  Weight: 73.48 kg

DRUGS (5)
  1. TRICLOSAN [Suspect]
     Indication: DENTAL CARE
     Dosage: 1 PEA-SIZED DAB
     Route: 048
     Dates: start: 20130201, end: 20130424
  2. TOPCARE [Concomitant]
  3. VIT D PLUS [Concomitant]
  4. CALCIUM [Concomitant]
  5. FISH OIL CAPSULES [Concomitant]

REACTIONS (3)
  - Back pain [None]
  - Musculoskeletal pain [None]
  - Drug ineffective [None]
